FAERS Safety Report 4447253-1 (Version None)
Quarter: 2004Q3

REPORT INFORMATION
  Report Type: 
  Country: None (occurrence: None)
  Receive Date: 20040908
  Receipt Date: 20040908
  Transmission Date: 20050211
  Serious: Yes (Hospitalization)
  Sender: FDA-Public Use
  Company Number: None

PATIENT
  Age: 46 Year
  Sex: Male

DRUGS (4)
  1. FOSINOPRIL SODIUM [Suspect]
     Indication: HYPERTENSION
     Dosage: 10 MG QD
     Dates: start: 20040315
  2. ZYPREXA [Concomitant]
  3. LORATADINE [Concomitant]
  4. ZOCOR [Concomitant]

REACTIONS (1)
  - SYNCOPE [None]
